FAERS Safety Report 16287745 (Version 1)
Quarter: 2019Q2

REPORT INFORMATION
  Report Type: Spontaneous
  Country: US (occurrence: US)
  Receive Date: 20190508
  Receipt Date: 20190508
  Transmission Date: 20190711
  Serious: Yes (Life-Threatening, Hospitalization, Other)
  Sender: FDA-Public Use
  Company Number: US-MYLANLABS-2019M1043791

PATIENT
  Age: 16 Year
  Sex: Female

DRUGS (2)
  1. CISPLATIN. [Concomitant]
     Active Substance: CISPLATIN
     Indication: NASOPHARYNGEAL CANCER
     Dosage: 3 CYCLES; ON DAY 1
     Route: 065
  2. FLUOROURACIL. [Suspect]
     Active Substance: FLUOROURACIL
     Indication: NASOPHARYNGEAL CANCER
     Dosage: CONTINUOUS INFUSION; 3 CYCLES ON DAY 1-4
     Route: 050

REACTIONS (3)
  - Cardiomyopathy [Recovered/Resolved]
  - Hypotension [Unknown]
  - Sinus tachycardia [Unknown]
